FAERS Safety Report 4589595-5 (Version None)
Quarter: 2005Q1

REPORT INFORMATION
  Report Type: 
  Country: None (occurrence: None)
  Receive Date: 20050216
  Receipt Date: 20050112
  Transmission Date: 20050727
  Serious: Yes (Hospitalization, Other)
  Sender: FDA-Public Use
  Company Number: ENTC2005-0006

PATIENT
  Age: 72 Year
  Sex: Female

DRUGS (1)
  1. STALEVO 100 [Suspect]
     Indication: PARKINSON'S DISEASE
     Dosage: 7 TABS/DAY ORAL
     Route: 048

REACTIONS (6)
  - ARTHRALGIA [None]
  - BRUXISM [None]
  - CHEST PAIN [None]
  - DYSPNOEA [None]
  - GINGIVAL PAIN [None]
  - HALLUCINATION [None]
